FAERS Safety Report 17213505 (Version 1)
Quarter: 2019Q4

REPORT INFORMATION
  Report Type: Spontaneous
  Country: US (occurrence: US)
  Receive Date: 20191230
  Receipt Date: 20191230
  Transmission Date: 20200122
  Serious: Yes (Other)
  Sender: FDA-Public Use
  Company Number: US-PFIZER INC-2019448951

PATIENT
  Age: 60 Year
  Sex: Female
  Weight: 80.29 kg

DRUGS (1)
  1. PRISTIQ EXTENDED-RELEASE [Suspect]
     Active Substance: DESVENLAFAXINE SUCCINATE
     Indication: DEPRESSION
     Dosage: 100 MG, 1X/DAY (AT BEDTIME)
     Route: 048

REACTIONS (4)
  - Blood cholesterol increased [Unknown]
  - Drug dependence [Unknown]
  - Depressed mood [Unknown]
  - Crying [Unknown]
